FAERS Safety Report 5853646-8 (Version None)
Quarter: 2008Q3

REPORT INFORMATION
  Report Type: 
  Country: None (occurrence: None)
  Receive Date: 20080822
  Receipt Date: 20080818
  Transmission Date: 20090109
  Serious: Yes (Other)
  Sender: FDA-Public Use
  Company Number: DE-AVENTIS-200812151DE

PATIENT
  Age: 89 Year
  Sex: Male

DRUGS (5)
  1. NOVALGIN                           /00039501/ [Suspect]
     Route: 048
  2. NOVALGIN                           /00039501/ [Suspect]
     Route: 048
  3. LASIX [Suspect]
     Route: 048
  4. MODURETIC 5-50 [Suspect]
     Dosage: DOSE: NOT REPORTED
  5. ANGIOTENSIN II ANTAGONISTS [Suspect]
     Indication: HYPERTENSION
     Dosage: DOSE: NOT REPORTED

REACTIONS (5)
  - CARDIAC FAILURE [None]
  - CONDITION AGGRAVATED [None]
  - DRUG INTERACTION [None]
  - OEDEMA PERIPHERAL [None]
  - PULMONARY OEDEMA [None]
